FAERS Safety Report 22720845 (Version 3)
Quarter: 2024Q1

REPORT INFORMATION
  Report Type: Report from Study
  Country: US (occurrence: US)
  Receive Date: 20230719
  Receipt Date: 20240312
  Transmission Date: 20240410
  Serious: Yes (Hospitalization, Other)
  Sender: FDA-Public Use
  Company Number: US-ABBVIE-5331070

PATIENT
  Age: 46 Year
  Sex: Male

DRUGS (1)
  1. SKYRIZI [Suspect]
     Active Substance: RISANKIZUMAB-RZAA
     Indication: Psoriasis
     Route: 058
     Dates: start: 20220922

REACTIONS (9)
  - Loss of consciousness [Recovering/Resolving]
  - Intervertebral disc protrusion [Unknown]
  - Mobility decreased [Unknown]
  - Fall [Recovering/Resolving]
  - Cardiac arrest [Unknown]
  - Intervertebral disc disorder [Recovering/Resolving]
  - Tracheostomy [Unknown]
  - Pain [Unknown]
  - Arthritis [Unknown]

NARRATIVE: CASE EVENT DATE: 20221122
